FAERS Safety Report 20996780 (Version 4)
Quarter: 2025Q4

REPORT INFORMATION
  Report Type: Report from Study
  Country: KR (occurrence: KR)
  Receive Date: 20220623
  Receipt Date: 20251202
  Transmission Date: 20260117
  Serious: Yes (Death, Life-Threatening, Hospitalization)
  Sender: ABBVIE
  Company Number: KR-ABBVIE-22K-090-4441744-00

PATIENT
  Age: 84 Year
  Sex: Male
  Weight: 66 kg

DRUGS (48)
  1. VENCLEXTA [Suspect]
     Active Substance: VENETOCLAX
     Indication: Acute myeloid leukaemia
     Route: 048
     Dates: start: 20220503, end: 20220503
  2. VENCLEXTA [Suspect]
     Active Substance: VENETOCLAX
     Indication: Acute myeloid leukaemia
     Route: 048
     Dates: start: 20220504, end: 20220504
  3. VENCLEXTA [Suspect]
     Active Substance: VENETOCLAX
     Indication: Acute myeloid leukaemia
     Route: 048
     Dates: start: 20220505, end: 20220505
  4. VENCLEXTA [Suspect]
     Active Substance: VENETOCLAX
     Indication: Acute myeloid leukaemia
     Route: 048
     Dates: start: 20220506, end: 20220523
  5. VENCLEXTA [Suspect]
     Active Substance: VENETOCLAX
     Indication: Acute myeloid leukaemia
     Route: 048
     Dates: start: 20220525, end: 20220526
  6. Vizadakin [Concomitant]
     Indication: Acute myeloid leukaemia
     Route: 042
     Dates: start: 20220503, end: 20220509
  7. ALLOPURINOL [Concomitant]
     Active Substance: ALLOPURINOL
     Indication: Prophylaxis
     Route: 048
     Dates: start: 20220317, end: 20220527
  8. FEBUXOSTAT [Concomitant]
     Active Substance: FEBUXOSTAT
     Indication: Prophylaxis
     Route: 048
     Dates: start: 20220528, end: 20220606
  9. Almagel [Concomitant]
     Indication: Gastrointestinal disorder prophylaxis
     Dosage: SUSPENSION
     Route: 048
     Dates: start: 20220323, end: 20220517
  10. AMLODIPINE CAMSYLATE [Concomitant]
     Active Substance: AMLODIPINE CAMSYLATE
     Indication: Hypertension
     Route: 048
     Dates: start: 20220412, end: 20220523
  11. GLICLAZIDE [Concomitant]
     Active Substance: GLICLAZIDE
     Indication: Diabetes mellitus
     Route: 048
     Dates: start: 20220421, end: 20220526
  12. DIOVAN [Concomitant]
     Active Substance: VALSARTAN
     Indication: Hypertension
     Route: 048
     Dates: start: 20220410, end: 20220527
  13. Feroba you sr [Concomitant]
     Indication: Acute myeloid leukaemia
     Route: 048
     Dates: start: 20201202, end: 20220523
  14. Sinil folic acid [Concomitant]
     Indication: Acute myeloid leukaemia
     Route: 048
     Dates: start: 20200617, end: 20220523
  15. VILDAGLIPTIN [Concomitant]
     Active Substance: VILDAGLIPTIN
     Indication: Diabetes mellitus
     Route: 048
     Dates: start: 20210101, end: 20220527
  16. LANSOPRAZOLE [Concomitant]
     Active Substance: LANSOPRAZOLE
     Indication: Gastrointestinal disorder prophylaxis
     Route: 048
     Dates: start: 20220317, end: 20220527
  17. LEVOFLOXACIN [Concomitant]
     Active Substance: LEVOFLOXACIN
     Indication: Infection prophylaxis
     Route: 048
     Dates: start: 20220503, end: 20220523
  18. Dulackhan easy [Concomitant]
     Indication: Constipation
     Route: 048
     Dates: start: 20220508, end: 20220618
  19. METHYLCOBALAMIN [Concomitant]
     Active Substance: METHYLCOBALAMIN
     Indication: Anaemia prophylaxis
     Route: 048
     Dates: start: 20200617, end: 20220516
  20. NOXAFIL [Concomitant]
     Active Substance: POSACONAZOLE
     Indication: Infection prophylaxis
     Route: 048
     Dates: start: 20220503, end: 20220617
  21. PLAVIX [Concomitant]
     Active Substance: CLOPIDOGREL BISULFATE
     Indication: Angina pectoris
     Route: 048
     Dates: start: 20220318, end: 20220509
  22. SULFAMETHOXAZOLE\TRIMETHOPRIM [Concomitant]
     Active Substance: SULFAMETHOXAZOLE\TRIMETHOPRIM
     Indication: Infection prophylaxis
     Route: 048
     Dates: start: 20220503, end: 20220523
  23. Solondo [Concomitant]
     Indication: Myelodysplastic syndrome
     Route: 048
     Dates: start: 20210609, end: 20220525
  24. Thiamine hcl sinil [Concomitant]
     Indication: Anaemia prophylaxis
     Route: 048
     Dates: start: 20200617, end: 20220516
  25. Ursa daewoong [Concomitant]
     Indication: Alanine aminotransferase increased
     Dosage: SC
     Route: 048
     Dates: start: 20220321, end: 20220618
  26. Vacrax [Concomitant]
     Indication: Infection prophylaxis
     Route: 048
     Dates: start: 20220503, end: 20220618
  27. RAMOSETRON HYDROCHLORIDE [Concomitant]
     Active Substance: RAMOSETRON HYDROCHLORIDE
     Indication: Prophylaxis of nausea and vomiting
     Route: 042
     Dates: start: 20220503, end: 20220509
  28. CALCIUM POLYSTYRENE SULFONATE [Concomitant]
     Active Substance: CALCIUM POLYSTYRENE SULFONATE
     Indication: Blood potassium increased
     Route: 048
     Dates: start: 20220504, end: 20220504
  29. Godex [Concomitant]
     Indication: Aspartate aminotransferase increased
     Route: 048
     Dates: start: 20220516, end: 20220618
  30. Herben retard [Concomitant]
     Indication: Angina pectoris
     Route: 048
     Dates: start: 20201130, end: 20220527
  31. DILTIAZEM HYDROCHLORIDE [Concomitant]
     Active Substance: DILTIAZEM HYDROCHLORIDE
     Indication: Angina pectoris
     Route: 048
     Dates: start: 20210316, end: 20220527
  32. DIETARY SUPPLEMENT\HERBALS\MILK THISTLE [Concomitant]
     Active Substance: MILK THISTLE
     Indication: Aspartate aminotransferase increased
     Route: 048
     Dates: start: 20220509, end: 20220516
  33. ISOSORBIDE DINITRATE [Concomitant]
     Active Substance: ISOSORBIDE DINITRATE
     Indication: Angina pectoris
     Dosage: AS NECESSARY
     Route: 045
     Dates: start: 20210316, end: 20220523
  34. COTRIM [Concomitant]
     Active Substance: SULFAMETHOXAZOLE\TRIMETHOPRIM
     Indication: Pyrexia
     Route: 042
     Dates: start: 20220524, end: 20220616
  35. PROPACETAMOL HYDROCHLORIDE [Concomitant]
     Active Substance: PROPACETAMOL HYDROCHLORIDE
     Indication: Pyrexia
     Route: 042
     Dates: start: 20220524, end: 20220526
  36. SINIL [Concomitant]
     Indication: Anaemia prophylaxis
     Dosage: THIAMINE HCI TAB 10MG
     Route: 048
     Dates: start: 20200617, end: 20220516
  37. MAXIPIME [Concomitant]
     Active Substance: CEFEPIME HYDROCHLORIDE
     Indication: Pyrexia
     Route: 042
     Dates: start: 20220525, end: 20220602
  38. K-contin continus [Concomitant]
     Indication: Blood potassium decreased
     Route: 048
     Dates: start: 20220525, end: 20220528
  39. NEXIUM I.V. [Concomitant]
     Active Substance: ESOMEPRAZOLE SODIUM
     Indication: Gastrointestinal disorder prophylaxis
     Route: 042
     Dates: start: 20220526, end: 20220618
  40. Predisole [Concomitant]
     Indication: Pneumocystis jirovecii pneumonia
     Route: 042
     Dates: start: 20220526, end: 20220615
  41. VITAMINS [Concomitant]
     Active Substance: VITAMINS
     Indication: Hypophagia
     Dosage: 1 VIAL
     Route: 042
     Dates: start: 20220526, end: 20220528
  42. YUHAN 3 CHAMBER FOMS PERI [Concomitant]
     Indication: Hypophagia
     Route: 042
     Dates: start: 20220526, end: 20220606
  43. Hepa merz [Concomitant]
     Indication: Aspartate aminotransferase increased
     Route: 042
     Dates: start: 20220528, end: 20220618
  44. Tasna [Concomitant]
     Indication: Antacid therapy
     Route: 048
     Dates: start: 20220506, end: 20220606
  45. HUMULIN R [Concomitant]
     Active Substance: INSULIN HUMAN
     Indication: Diabetes mellitus
     Route: 058
     Dates: start: 20220529, end: 20220617
  46. Dongkwang meropenem [Concomitant]
     Indication: Pneumocystis jirovecii pneumonia
     Route: 042
     Dates: start: 20220610, end: 20220618
  47. BATROXOBIN [Concomitant]
     Active Substance: BATROXOBIN
     Indication: Haemorrhage prophylaxis
     Route: 042
     Dates: start: 20220603, end: 20220618
  48. TRANEXAMIC ACID [Concomitant]
     Active Substance: TRANEXAMIC ACID
     Indication: Haemorrhage prophylaxis
     Route: 042
     Dates: start: 20220603, end: 20220618

REACTIONS (1)
  - Pneumocystis jirovecii pneumonia [Fatal]

NARRATIVE: CASE EVENT DATE: 20220523
